FAERS Safety Report 5329676-1 (Version None)
Quarter: 2007Q2

REPORT INFORMATION
  Report Type: 
  Country: None (occurrence: None)
  Receive Date: 20070227
  Receipt Date: 20060103
  Transmission Date: 20071010
  Serious: Yes (Hospitalization)
  Sender: FDA-Public Use
  Company Number: 417111

PATIENT
  Age: 39 Year
  Sex: Female
  Weight: 54.4 kg

DRUGS (2)
  1. ACCUTANE [Suspect]
     Indication: ACNE
     Dosage: 40 MG DAILY ORAL
     Route: 048
     Dates: start: 20050601, end: 20050722
  2. SYNTHROID [Concomitant]

REACTIONS (5)
  - ANTINUCLEAR ANTIBODY POSITIVE [None]
  - ARTHRALGIA [None]
  - LUPUS-LIKE SYNDROME [None]
  - NAUSEA [None]
  - THROMBOPHLEBITIS [None]
